FAERS Safety Report 14599471 (Version 1)
Quarter: 2018Q1

REPORT INFORMATION
  Report Type: Spontaneous
  Country: US (occurrence: US)
  Receive Date: 20180305
  Receipt Date: 20180305
  Transmission Date: 20180509
  Serious: Yes (Hospitalization, Other)
  Sender: FDA-Public Use
  Company Number: US-PFIZER INC-2018087374

PATIENT
  Age: 80 Year
  Sex: Male
  Weight: 79.38 kg

DRUGS (1)
  1. LYRICA [Suspect]
     Active Substance: PREGABALIN
     Dosage: 150 MG, DAILY, (ONE CAPSULE AT BEDTIME)
     Route: 048

REACTIONS (7)
  - Dislocation of vertebra [Recovering/Resolving]
  - Weight decreased [Unknown]
  - Nephrolithiasis [Unknown]
  - Seizure [Unknown]
  - Tooth disorder [Unknown]
  - Fall [Recovering/Resolving]
  - Memory impairment [Unknown]

NARRATIVE: CASE EVENT DATE: 20170905
